FAERS Safety Report 18940417 (Version 1)
Quarter: 2021Q1

REPORT INFORMATION
  Report Type: Other
  Country: AT (occurrence: AT)
  Receive Date: 20210225
  Receipt Date: 20210225
  Transmission Date: 20210420
  Serious: Yes (Other)
  Sender: FDA-Public Use
  Company Number: AT-ROCHE-2769966

PATIENT
  Age: 58 Year
  Sex: Female
  Weight: 71 kg

DRUGS (10)
  1. EMSER [Concomitant]
     Dates: start: 20191009
  2. PERTUZUMAB. [Suspect]
     Active Substance: PERTUZUMAB
     Indication: BREAST CANCER
     Dosage: ON 18/SEP/2019: MOST RECENT DOSE OF PERTUZUMAB PRIOR TO THE EVENT
     Route: 042
     Dates: start: 20190403, end: 20190403
  3. CALCIDURAN [Concomitant]
     Active Substance: ASCORBIC ACID\CALCIUM PHOSPHATE\CHOLECALCIFEROL\CITRIC ACID MONOHYDRATE
     Dosage: ONGOING = CHECKED
     Dates: start: 20190809
  4. PARACODEINE [Concomitant]
     Active Substance: ACETAMINOPHEN\CODEINE PHOSPHATE
     Dates: start: 20191009
  5. DUROTIV [Concomitant]
     Active Substance: ESOMEPRAZOLE
     Dosage: ONGOING = CHECKED
     Dates: start: 20190809
  6. LOVENOX [Concomitant]
     Active Substance: ENOXAPARIN SODIUM
     Dosage: ONGOING = CHECKED
     Dates: start: 20190809
  7. PACLITAXEL. [Suspect]
     Active Substance: PACLITAXEL
     Indication: BREAST CANCER
     Route: 042
     Dates: start: 20190403, end: 20190624
  8. KCL [Concomitant]
     Active Substance: POTASSIUM CHLORIDE
     Dates: start: 20191023
  9. NOVALGIN (AUSTRIA) [Concomitant]
     Dates: start: 20191023
  10. THYREX [Concomitant]
     Active Substance: LEVOTHYROXINE SODIUM
     Dosage: ONGOING = CHECKED

REACTIONS (1)
  - Wound infection [Recovered/Resolved]

NARRATIVE: CASE EVENT DATE: 20201113
